FAERS Safety Report 19220589 (Version 3)
Quarter: 2021Q2

REPORT INFORMATION
  Report Type: Report from Study
  Country: None (occurrence: US)
  Receive Date: 20210505
  Receipt Date: 20210601
  Transmission Date: 20210717
  Serious: Yes (Other)
  Sender: FDA-Public Use
  Company Number: US-ABBVIE-21K-163-3886093-00

PATIENT
  Age: 45 Year
  Sex: Female
  Weight: 85.35 kg

DRUGS (3)
  1. HUMIRA [Suspect]
     Active Substance: ADALIMUMAB
     Indication: CROHN^S DISEASE
     Route: 058
     Dates: start: 201909, end: 202010
  2. HUMIRA [Suspect]
     Active Substance: ADALIMUMAB
     Indication: RHEUMATOID ARTHRITIS
  3. OMEPRAZOLE. [Concomitant]
     Active Substance: OMEPRAZOLE
     Indication: DYSPEPSIA
     Route: 065

REACTIONS (8)
  - Gastrointestinal obstruction [Recovering/Resolving]
  - Systemic lupus erythematosus [Recovering/Resolving]
  - Swelling [Recovering/Resolving]
  - Influenza like illness [Recovered/Resolved]
  - Neurological symptom [Unknown]
  - Crohn^s disease [Recovering/Resolving]
  - Gait inability [Recovering/Resolving]
  - Rheumatoid arthritis [Unknown]

NARRATIVE: CASE EVENT DATE: 202011
